FAERS Safety Report 16950140 (Version 2)
Quarter: 2019Q4

REPORT INFORMATION
  Report Type: Spontaneous
  Country: US (occurrence: US)
  Receive Date: 20191023
  Receipt Date: 20191031
  Transmission Date: 20200122
  Serious: No
  Sender: FDA-Public Use
  Company Number: US-AMGEN-USASP2019174262

PATIENT
  Sex: Female

DRUGS (9)
  1. ENBREL [Suspect]
     Active Substance: ETANERCEPT
     Dosage: 50 MILLIGRAM, QWK
     Route: 058
  2. RESTASIS [Concomitant]
     Active Substance: CYCLOSPORINE
     Dosage: UNK
  3. ENBREL [Suspect]
     Active Substance: ETANERCEPT
     Indication: PSORIATIC ARTHROPATHY
     Dosage: 50 MILLIGRAM, QWK
     Route: 058
     Dates: start: 20160411
  4. DUREZOL [Concomitant]
     Active Substance: DIFLUPREDNATE
     Dosage: UNK
  5. XIIDRA [Concomitant]
     Active Substance: LIFITEGRAST
     Dosage: UNK
  6. ESTRING [Concomitant]
     Active Substance: ESTRADIOL
     Dosage: 2 MILLIGRAM
  7. ALPHAGAN P [Concomitant]
     Active Substance: BRIMONIDINE TARTRATE
     Dosage: UNK
  8. VIGAMOX [Concomitant]
     Active Substance: MOXIFLOXACIN HYDROCHLORIDE
     Dosage: UNK
  9. PROGESTERONE. [Concomitant]
     Active Substance: PROGESTERONE
     Dosage: 200 MILLIGRAM

REACTIONS (1)
  - Urinary tract infection [Recovered/Resolved]
